FAERS Safety Report 5759062-1 (Version None)
Quarter: 2008Q2

REPORT INFORMATION
  Report Type: 
  Country: None (occurrence: None)
  Receive Date: 20080604
  Receipt Date: 20080530
  Transmission Date: 20081010
  Serious: Yes (Disabling)
  Sender: FDA-Public Use
  Company Number: US-BAXTER-2008BH005703

PATIENT
  Sex: Male

DRUGS (1)
  1. HEPARIN SODIUM INJECTION [Suspect]
     Indication: CARDIAC OPERATION
     Dosage: DOSE UNIT:UNKNOWN
     Route: 042
     Dates: start: 20070919, end: 20070919

REACTIONS (4)
  - HAEMORRHAGE [None]
  - HYPERSENSITIVITY [None]
  - POST PROCEDURAL HAEMATOMA [None]
  - POST PROCEDURAL STROKE [None]
